FAERS Safety Report 6510067-2 (Version None)
Quarter: 2009Q4

REPORT INFORMATION
  Report Type: 
  Country: None (occurrence: None)
  Receive Date: 20091222
  Receipt Date: 20090928
  Transmission Date: 20100525
  Serious: No
  Sender: FDA-Public Use
  Company Number: US-BAUSCH-2009BL005197

PATIENT
  Age: 65 Year
  Sex: Female

DRUGS (2)
  1. BESIVANCE [Suspect]
     Indication: CONJUNCTIVITIS
     Route: 047
     Dates: start: 20090801, end: 20090801
  2. BESIVANCE [Suspect]
     Indication: OFF LABEL USE
     Route: 047
     Dates: start: 20090801, end: 20090801

REACTIONS (2)
  - EYE IRRITATION [None]
  - OCULAR HYPERAEMIA [None]
